FAERS Safety Report 23923671 (Version 1)
Quarter: 2024Q2

REPORT INFORMATION
  Report Type: Spontaneous
  Country: BE (occurrence: BE)
  Receive Date: 20240531
  Receipt Date: 20240531
  Transmission Date: 20240716
  Serious: Yes (Other)
  Sender: FDA-Public Use
  Company Number: BE-SUN PHARMACEUTICAL INDUSTRIES LTD-2024R1-448818

PATIENT
  Age: 19 Year
  Sex: Male

DRUGS (3)
  1. CEFTRIAXONE [Suspect]
     Active Substance: CEFTRIAXONE\CEFTRIAXONE SODIUM
     Indication: Meningitis
     Dosage: 2 GRAM, BID
     Route: 042
  2. ACYCLOVIR [Suspect]
     Active Substance: ACYCLOVIR
     Indication: Meningitis
     Dosage: 750 MILLIGRAM, TID
     Route: 042
  3. DICLOFENAC [Suspect]
     Active Substance: DICLOFENAC
     Indication: Meningitis
     Dosage: 75 MILLIGRAM, BID
     Route: 042

REACTIONS (2)
  - Varicella virus test positive [Unknown]
  - Acute kidney injury [Unknown]
